FAERS Safety Report 7394812-2 (Version None)
Quarter: 2011Q2

REPORT INFORMATION
  Report Type: 
  Country: None (occurrence: None)
  Receive Date: 20110405
  Receipt Date: 20110329
  Transmission Date: 20111010
  Serious: Yes (Hospitalization)
  Sender: FDA-Public Use
  Company Number: A0773258A

PATIENT
  Age: 50 Year
  Sex: Female
  Weight: 70.5 kg

DRUGS (7)
  1. NORTRIPTYLINE HCL [Concomitant]
  2. AVANDIA [Suspect]
     Dosage: 4MG TWICE PER DAY
     Route: 048
     Dates: start: 20051229, end: 20060618
  3. ZOCOR [Concomitant]
  4. INSULIN [Concomitant]
  5. ARTHROTEC [Concomitant]
  6. ASPIRIN [Concomitant]
  7. AVANDAMET [Suspect]
     Route: 048
     Dates: start: 20051102, end: 20070729

REACTIONS (3)
  - VERTIGO [None]
  - CEREBROVASCULAR DISORDER [None]
  - CEREBROVASCULAR ACCIDENT [None]
